FAERS Safety Report 7998274-3 (Version None)
Quarter: 2011Q4

REPORT INFORMATION
  Report Type: 
  Country: None (occurrence: None)
  Receive Date: 20111221
  Receipt Date: 20110607
  Transmission Date: 20120403
  Serious: No
  Sender: FDA-Public Use
  Company Number: US-GLAXOSMITHKLINE-A0930597A

PATIENT
  Age: 49 Year
  Sex: Female

DRUGS (4)
  1. CRESTOR [Concomitant]
  2. MULTI-VITAMIN [Concomitant]
  3. LOVAZA [Suspect]
     Indication: BLOOD CHOLESTEROL INCREASED
     Dosage: 1G TWICE PER DAY
     Route: 048
     Dates: start: 20100601, end: 20110501
  4. ALLERGY SHOTS [Concomitant]

REACTIONS (1)
  - URTICARIA [None]
